FAERS Safety Report 7350164-5 (Version None)
Quarter: 2011Q1

REPORT INFORMATION
  Report Type: 
  Country: None (occurrence: None)
  Receive Date: 20110314
  Receipt Date: 20110303
  Transmission Date: 20110831
  Serious: Yes (Hospitalization)
  Sender: FDA-Public Use
  Company Number: B0699953A

PATIENT
  Age: 39 Year
  Sex: Female

DRUGS (1)
  1. AVANDAMET [Suspect]
     Indication: DIABETES MELLITUS
     Route: 048
     Dates: start: 20080201, end: 20080501

REACTIONS (2)
  - CARDIAC FAILURE CONGESTIVE [None]
  - RENAL FAILURE [None]
